FAERS Safety Report 8921055 (Version 1)
Quarter: 2012Q4

REPORT INFORMATION
  Report Type: 
  Country: US (occurrence: US)
  Receive Date: 20121121
  Receipt Date: 20121121
  Transmission Date: 20130627
  Serious: No
  Sender: FDA-Public Use
  Company Number: US-ELI_LILLY_AND_COMPANY-US201211004353

PATIENT
  Sex: Female

DRUGS (1)
  1. CYMBALTA [Suspect]
     Dosage: 60 mg, unknown
     Dates: start: 201208, end: 201209

REACTIONS (2)
  - Liver function test abnormal [Recovered/Resolved]
  - Intentional drug misuse [Recovered/Resolved]
